FAERS Safety Report 5258726-6 (Version None)
Quarter: 2007Q1

REPORT INFORMATION
  Report Type: 
  Country: None (occurrence: None)
  Receive Date: 20070308
  Receipt Date: 20070305
  Transmission Date: 20070707
  Serious: Yes (Hospitalization, Other)
  Sender: FDA-Public Use
  Company Number: NG-BRISTOL-MYERS SQUIBB COMPANY-13702774

PATIENT
  Age: 12 Year
  Sex: Male

DRUGS (3)
  1. CAPTOPRIL [Suspect]
  2. AMPICILLIN [Suspect]
  3. CLOXACILLIN SODIUM [Suspect]

REACTIONS (6)
  - GLOMERULONEPHRITIS MEMBRANOPROLIFERATIVE [None]
  - GRAND MAL CONVULSION [None]
  - HEADACHE [None]
  - HYPERTENSIVE EMERGENCY [None]
  - LOSS OF CONSCIOUSNESS [None]
  - RENAL FAILURE ACUTE [None]
